FAERS Safety Report 8849514 (Version 2)
Quarter: 2012Q4

REPORT INFORMATION
  Report Type: 
  Country: US (occurrence: US)
  Receive Date: 20121019
  Receipt Date: 20121105
  Transmission Date: 20130627
  Serious: No
  Sender: FDA-Public Use
  Company Number: US-PFIZER INC-2012258780

PATIENT
  Age: 74 Year
  Sex: Male
  Weight: 78.01 kg

DRUGS (10)
  1. VIAGRA [Suspect]
     Indication: ERECTILE DYSFUNCTION
     Dosage: 100 mg, monthly
     Route: 048
     Dates: start: 2012, end: 201209
  2. VIAGRA [Interacting]
     Indication: INABILITY TO MAINTAIN ERECTION
  3. LIPITOR [Concomitant]
     Indication: HIGH CHOLESTEROL
     Dosage: 20 mg, daily
  4. TOPROL XL [Concomitant]
     Dosage: 25 mg, daily
  5. NORVASC [Concomitant]
     Indication: BLOOD PRESSURE HIGH
     Dosage: 10 mg, daily
  6. PREVACID [Concomitant]
     Dosage: 30 mg, UNK
  7. ZYRTEC [Concomitant]
     Indication: ALLERGY
     Dosage: 5 mg, UNK
  8. ECOTRIN [Concomitant]
     Dosage: 325 mg, UNK
  9. MIRALAX [Concomitant]
     Dosage: 1 teaspoon daily
  10. FISH OIL [Concomitant]
     Dosage: 2400 mg, UNK

REACTIONS (4)
  - Suspected counterfeit product [Unknown]
  - Drug interaction [Unknown]
  - Abdominal pain upper [Recovered/Resolved]
  - Diarrhoea [Recovered/Resolved]
